FAERS Safety Report 6508679-5 (Version None)
Quarter: 2009Q4

REPORT INFORMATION
  Report Type: 
  Country: None (occurrence: None)
  Receive Date: 20091221
  Receipt Date: 20090826
  Transmission Date: 20100525
  Serious: No
  Sender: FDA-Public Use
  Company Number: US-ASTRAZENECA-2009SE06253

PATIENT
  Age: 81 Year
  Sex: Female

DRUGS (5)
  1. CRESTOR [Suspect]
     Indication: BLOOD CHOLESTEROL INCREASED
     Route: 048
     Dates: start: 20070101
  2. SYMBICORT [Suspect]
     Indication: CHRONIC OBSTRUCTIVE PULMONARY DISEASE
     Dosage: 160/4.5 1 PUFF
     Route: 055
  3. METOPROLOL TARTRATE [Concomitant]
     Indication: SUPRAVENTRICULAR TACHYCARDIA
     Route: 048
  4. SYNTHROID [Concomitant]
     Indication: HYPOTHYROIDISM
     Dosage: 0.075 ALTERNATING WITH 0.05 EVERY OTHER DAY
  5. AVALAID [Concomitant]
     Indication: HYPERTENSION
     Route: 048

REACTIONS (1)
  - LIVER DISORDER [None]
